FAERS Safety Report 4658687-4 (Version None)
Quarter: 2005Q2

REPORT INFORMATION
  Report Type: 
  Country: None (occurrence: None)
  Receive Date: 20050511
  Receipt Date: 20050504
  Transmission Date: 20051028
  Serious: Yes (Death, Hospitalization, Other)
  Sender: FDA-Public Use
  Company Number: PHBS2005BG06367

PATIENT
  Age: 60 Year
  Sex: Male

DRUGS (1)
  1. LEPONEX [Suspect]
     Indication: SCHIZOPHRENIA
     Dosage: UNK, UNK
     Route: 048

REACTIONS (8)
  - ASPARTATE AMINOTRANSFERASE INCREASED [None]
  - ASTHENIA [None]
  - BLOOD BILIRUBIN INCREASED [None]
  - FATIGUE [None]
  - HAEMOGLOBIN INCREASED [None]
  - HEPATIC ENZYME INCREASED [None]
  - JAUNDICE [None]
  - PNEUMONIA [None]
